FAERS Safety Report 7202622-1 (Version None)
Quarter: 2010Q4

REPORT INFORMATION
  Report Type: 
  Country: None (occurrence: None)
  Receive Date: 20101206
  Receipt Date: 20101126
  Transmission Date: 20110411
  Serious: Yes (Other)
  Sender: FDA-Public Use
  Company Number: CA-145106

PATIENT
  Age: 18 Year
  Sex: Male

DRUGS (1)
  1. WINRHO SDF [Suspect]
     Dosage: (INTRAVENOUS)
     Route: 042

REACTIONS (8)
  - ABDOMINAL PAIN UPPER [None]
  - BACK PAIN [None]
  - CHILLS [None]
  - DIZZINESS [None]
  - HEADACHE [None]
  - PYREXIA [None]
  - SCLERAL DISCOLOURATION [None]
  - TACHYCARDIA [None]
